FAERS Safety Report 15561968 (Version 1)
Quarter: 2018Q4

REPORT INFORMATION
  Report Type: Spontaneous
  Country: US (occurrence: US)
  Receive Date: 20181029
  Receipt Date: 20181029
  Transmission Date: 20190205
  Serious: No
  Sender: FDA-Public Use
  Company Number: US-SA-2018SA296467

PATIENT
  Age: 49 Year
  Sex: Male

DRUGS (1)
  1. SOLIQUA 100/33 [Suspect]
     Active Substance: INSULIN GLARGINE\LIXISENATIDE
     Indication: TYPE 2 DIABETES MELLITUS
     Dosage: 60 IU, QD
     Dates: start: 201805

REACTIONS (5)
  - Blood glucose increased [Unknown]
  - Abdominal distension [Unknown]
  - Back pain [Unknown]
  - Neuralgia [Unknown]
  - Paraesthesia [Unknown]
